FAERS Safety Report 23934177 (Version 2)
Quarter: 2024Q3

REPORT INFORMATION
  Report Type: Spontaneous
  Country: CA (occurrence: CA)
  Receive Date: 20240603
  Receipt Date: 20240923
  Transmission Date: 20241017
  Serious: Yes (Death, Hospitalization, Other)
  Sender: TEVA
  Company Number: CA-TEVA-VS-3203668

PATIENT
  Sex: Male

DRUGS (4)
  1. PREDNISONE [Suspect]
     Active Substance: PREDNISONE
     Indication: Prophylaxis against transplant rejection
     Route: 065
  2. RITUXIMAB [Suspect]
     Active Substance: RITUXIMAB
     Indication: Prophylaxis against transplant rejection
     Route: 065
  3. BAMLANIVIMAB [Concomitant]
     Active Substance: BAMLANIVIMAB
     Indication: Product used for unknown indication
     Route: 065
  4. RITUXIMAB [Concomitant]
     Active Substance: RITUXIMAB
     Indication: Post transplant lymphoproliferative disorder
     Route: 065

REACTIONS (3)
  - COVID-19 [Fatal]
  - Respiratory failure [Fatal]
  - Upper respiratory tract infection [Fatal]
